FAERS Safety Report 22265466 (Version 1)
Quarter: 2023Q2

REPORT INFORMATION
  Report Type: Spontaneous
  Country: US (occurrence: US)
  Receive Date: 20230428
  Receipt Date: 20230428
  Transmission Date: 20230721
  Serious: No
  Sender: FDA-Public Use
  Company Number: US-MYOVANT SCIENCES GMBH-2023MYSCI0300729

PATIENT
  Sex: Male

DRUGS (6)
  1. ORGOVYX [Suspect]
     Active Substance: RELUGOLIX
     Indication: Prostate cancer
     Dosage: 120 MILLIGRAM, QD
     Route: 048
     Dates: start: 202210
  2. ATORVASTATIN [Concomitant]
     Active Substance: ATORVASTATIN
     Indication: Blood cholesterol increased
     Dosage: 40 MILLIGRAM, QD
     Route: 065
     Dates: start: 202302
  3. XTANDI [Concomitant]
     Active Substance: ENZALUTAMIDE
     Indication: Prostate cancer
     Dosage: 80 MILLIGRAM, QD
     Route: 065
     Dates: start: 2021
  4. VITAMIN C [Concomitant]
     Active Substance: ASCORBIC ACID
     Indication: General physical condition
     Dosage: 500 MILLIGRAM, 3 TIMES A WEEK / EVERY OTHER DAY
     Route: 065
  5. VITAMIN D                          /00107901/ [Concomitant]
     Indication: General physical condition
     Dosage: 50000 INTERNATIONAL UNIT, 1 TIME A WEEK
     Route: 065
  6. MULTIVITAMIN                       /07504101/ [Concomitant]
     Indication: General physical condition
     Dosage: UNK, QD
     Route: 065

REACTIONS (1)
  - Therapy interrupted [Unknown]
